FAERS Safety Report 9921655 (Version 1)
Quarter: 2014Q1

REPORT INFORMATION
  Report Type: Report from Study
  Country: US (occurrence: US)
  Receive Date: 20140225
  Receipt Date: 20140225
  Transmission Date: 20141002
  Serious: Yes (Death, Hospitalization, Other)
  Sender: FDA-Public Use
  Company Number: US-ASTELLAS-2014US001813

PATIENT
  Age: 75 Year
  Sex: Male

DRUGS (4)
  1. ERLOTINIB TABLET [Suspect]
     Indication: LUNG NEOPLASM MALIGNANT
     Dosage: 150 MG, UID/QD
     Route: 048
     Dates: start: 201312
  2. NORCO [Concomitant]
     Indication: PAIN
     Dosage: 20 MG, UNKNOWN/D
     Route: 048
     Dates: start: 201311, end: 20131218
  3. ALEVE [Concomitant]
     Indication: PAIN
     Dosage: 2 DF, AT BED TIME AS NEEDED
     Route: 048
     Dates: start: 201309, end: 20131218
  4. IMODIUM [Concomitant]
     Indication: DIARRHOEA
     Dosage: UNK
     Route: 048
     Dates: start: 201312, end: 20131218

REACTIONS (9)
  - Death [Fatal]
  - Mass [Unknown]
  - Abdominal pain [Unknown]
  - Dehydration [Unknown]
  - Intestinal perforation [Unknown]
  - Rash [Recovering/Resolving]
  - Diarrhoea [Unknown]
  - Asthenia [Unknown]
  - Back pain [Recovered/Resolved]
